FAERS Safety Report 4788733-9 (Version None)
Quarter: 2005Q3

REPORT INFORMATION
  Report Type: 
  Country: None (occurrence: None)
  Receive Date: 20050915
  Receipt Date: 20050602
  Transmission Date: 20060218
  Serious: No
  Sender: FDA-Public Use
  Company Number: BDI-007256

PATIENT
  Age: 22 Year
  Sex: Male

DRUGS (1)
  1. MULTIHANCE [Suspect]
     Indication: HEADACHE
     Dosage: 15 ML ONCE IV
     Route: 042
     Dates: start: 20050527, end: 20050527

REACTIONS (6)
  - BLOOD PRESSURE INCREASED [None]
  - COUGH [None]
  - ERYTHEMA [None]
  - HEART RATE INCREASED [None]
  - NASAL CONGESTION [None]
  - NAUSEA [None]
